FAERS Safety Report 7517724-X (Version None)
Quarter: 2011Q2

REPORT INFORMATION
  Report Type: 
  Country: None (occurrence: None)
  Receive Date: 20110602
  Receipt Date: 20110520
  Transmission Date: 20111010
  Serious: No
  Sender: FDA-Public Use
  Company Number: US-BIOGENIDEC-2011BI016130

PATIENT
  Age: 37 Year
  Sex: Female

DRUGS (6)
  1. MOBIC [Concomitant]
     Route: 048
  2. VITAMIN D [Concomitant]
  3. AMPYRA [Concomitant]
     Route: 048
  4. NEURONTIN [Concomitant]
     Route: 048
  5. BACLOFEN [Concomitant]
     Route: 048
  6. TYSABRI [Suspect]
     Indication: MULTIPLE SCLEROSIS
     Route: 042
     Dates: start: 20100818, end: 20110322

REACTIONS (5)
  - AFFECT LABILITY [None]
  - MULTIPLE SCLEROSIS RELAPSE [None]
  - PAIN [None]
  - FIBROMYALGIA [None]
  - NEUROGENIC BLADDER [None]
